FAERS Safety Report 8858132 (Version 1)
Quarter: 2012Q4

REPORT INFORMATION
  Report Type: 
  Country: US (occurrence: US)
  Receive Date: 20121024
  Receipt Date: 20121024
  Transmission Date: 20130627
  Serious: No
  Sender: FDA-Public Use
  Company Number: US-AMGEN-USASP2011065528

PATIENT
  Age: 55 Year
  Sex: Female
  Weight: 54.42 kg

DRUGS (2)
  1. TYLENOL /00020001/ [Concomitant]
     Dosage: 325 mg, UNK
  2. ENBREL [Suspect]
     Indication: RHEUMATOID ARTHRITIS
     Dosage: 50 mg, qwk
     Route: 058

REACTIONS (4)
  - Headache [Unknown]
  - Injection site reaction [Unknown]
  - Injection site erythema [Unknown]
  - Injection site swelling [Unknown]
